FAERS Safety Report 25129490 (Version 1)
Quarter: 2025Q1

REPORT INFORMATION
  Report Type: Spontaneous
  Country: US (occurrence: None)
  Receive Date: 20250326
  Receipt Date: 20250326
  Transmission Date: 20250408
  Serious: Yes (Other)
  Sender: FDA-CTU
  Company Number: None

PATIENT
  Age: 51 Year
  Sex: Male
  Weight: 119.25 kg

DRUGS (3)
  1. BIVIGAM [Suspect]
     Active Substance: HUMAN IMMUNOGLOBULIN G
     Indication: Chronic inflammatory demyelinating polyradiculoneuropathy
     Route: 041
     Dates: start: 20250305, end: 20250305
  2. Vitamin D 50,000 [Concomitant]
  3. Tribenzor 40-10-25 [Concomitant]

REACTIONS (5)
  - Urticaria [None]
  - Pruritus [None]
  - Paraesthesia [None]
  - Infusion related reaction [None]
  - Adverse drug reaction [None]

NARRATIVE: CASE EVENT DATE: 20250305
